FAERS Safety Report 6276515-0 (Version None)
Quarter: 2009Q3

REPORT INFORMATION
  Report Type: 
  Country: None (occurrence: None)
  Receive Date: 20090720
  Receipt Date: 20090406
  Transmission Date: 20100115
  Serious: Yes (Death, Other)
  Sender: FDA-Public Use
  Company Number: USA-2009-0037215

PATIENT
  Age: 17 Year
  Sex: Female
  Weight: 56.7 kg

DRUGS (5)
  1. MORPHINE SULFATE [Suspect]
     Indication: DRUG USE FOR UNKNOWN INDICATION
  2. DIAZEPAM [Suspect]
     Indication: DRUG USE FOR UNKNOWN INDICATION
  3. TEMAZEPAM [Suspect]
     Indication: DRUG USE FOR UNKNOWN INDICATION
  4. PROMETHAZINE [Suspect]
     Indication: DRUG USE FOR UNKNOWN INDICATION
  5. CANNABIS (CANNABIS SATIVA) [Suspect]
     Indication: SUBSTANCE ABUSE

REACTIONS (3)
  - DRUG ABUSE [None]
  - HEADACHE [None]
  - MULTIPLE DRUG OVERDOSE ACCIDENTAL [None]
